FAERS Safety Report 7463433-5 (Version None)
Quarter: 2011Q2

REPORT INFORMATION
  Report Type: 
  Country: None (occurrence: None)
  Receive Date: 20110506
  Receipt Date: 20110428
  Transmission Date: 20111010
  Serious: Yes (Death)
  Sender: FDA-Public Use
  Company Number: B0716507A

PATIENT

DRUGS (1)
  1. PAXIL [Suspect]
     Dosage: 300IUAX PER DAY
     Route: 048

REACTIONS (1)
  - INTENTIONAL OVERDOSE [None]
